FAERS Safety Report 10612801 (Version 1)
Quarter: 2014Q4

REPORT INFORMATION
  Report Type: Spontaneous
  Country: US (occurrence: US)
  Receive Date: 20141127
  Receipt Date: 20141127
  Transmission Date: 20150529
  Serious: No
  Sender: FDA-Public Use
  Company Number: US-HORIZON-VIM-0086-2014

PATIENT
  Age: 61 Year
  Sex: Female

DRUGS (1)
  1. VIMOVO [Suspect]
     Active Substance: ESOMEPRAZOLE MAGNESIUM\NAPROXEN
     Indication: PAIN

REACTIONS (2)
  - No adverse event [Recovered/Resolved]
  - Accidental overdose [Recovered/Resolved]

NARRATIVE: CASE EVENT DATE: 20140930
